FAERS Safety Report 8859036 (Version 1)
Quarter: 2012Q4

REPORT INFORMATION
  Report Type: Spontaneous
  Country: US (occurrence: None)
  Receive Date: 20121022
  Receipt Date: 20121022
  Transmission Date: 20130627
  Serious: Yes (Other)
  Sender: FDA-Public Use
  Company Number: 1058860

PATIENT
  Age: 52 Year
  Sex: Female

DRUGS (1)
  1. FLUVOXAMINE MALEATE [Suspect]
     Indication: ANXIODEPRESSIVE SYNDROME
     Dates: start: 20110530, end: 20110611

REACTIONS (3)
  - Stress cardiomyopathy [None]
  - Malaise [None]
  - Oedema peripheral [None]
